FAERS Safety Report 18510529 (Version 2)
Quarter: 2020Q4

REPORT INFORMATION
  Report Type: Spontaneous
  Country: AT (occurrence: AT)
  Receive Date: 20201117
  Receipt Date: 20201125
  Transmission Date: 20210114
  Serious: Yes (Death)
  Sender: FDA-Public Use
  Company Number: AT-JNJFOC-20201111690

PATIENT
  Sex: Male

DRUGS (4)
  1. CELEBREX [Concomitant]
     Active Substance: CELECOXIB
  2. STELARA [Suspect]
     Active Substance: USTEKINUMAB
     Route: 058
  3. XEFO [Concomitant]
     Active Substance: LORNOXICAM
  4. STELARA [Suspect]
     Active Substance: USTEKINUMAB
     Indication: CROHN^S DISEASE
     Route: 058
     Dates: start: 201909

REACTIONS (3)
  - Off label use [Unknown]
  - Product use issue [Unknown]
  - Acute myocardial infarction [Fatal]
